FAERS Safety Report 9750984 (Version 1)
Quarter: 2013Q4

REPORT INFORMATION
  Report Type: Spontaneous
  Country: US (occurrence: US)
  Receive Date: 20131212
  Receipt Date: 20131212
  Transmission Date: 20140711
  Serious: Yes (Other)
  Sender: FDA-Public Use
  Company Number: US-TEVA-400248USA

PATIENT
  Age: 30 Year
  Sex: Female
  Weight: 59.93 kg

DRUGS (6)
  1. PARAGARD 380A [Suspect]
     Indication: CONTRACEPTION
     Route: 015
     Dates: start: 20120828, end: 20130422
  2. HYDROCORTISONE [Concomitant]
  3. TRETINOIN [Concomitant]
  4. WELLBUTRIN [Concomitant]
  5. XANAX [Concomitant]
  6. BUSPIRONE [Concomitant]

REACTIONS (1)
  - Device dislocation [Recovered/Resolved]
